FAERS Safety Report 9779640 (Version 1)
Quarter: 2013Q4

REPORT INFORMATION
  Report Type: Spontaneous
  Country: US (occurrence: US)
  Receive Date: 20131223
  Receipt Date: 20131223
  Transmission Date: 20140711
  Serious: Yes (Hospitalization, Other)
  Sender: FDA-Public Use
  Company Number: US-ENDO PHARMACEUTICALS INC.-ZOLP20130008

PATIENT
  Sex: Male

DRUGS (1)
  1. ZOLPIDEM TARTRATE TABLETS 10MG [Suspect]
     Indication: INSOMNIA
     Route: 048

REACTIONS (5)
  - Somnambulism [Recovered/Resolved]
  - Fall [Recovered/Resolved]
  - Contusion [Recovered/Resolved]
  - Memory impairment [Recovered/Resolved]
  - Somnolence [Recovered/Resolved]
